FAERS Safety Report 5611577-2 (Version None)
Quarter: 2008Q1

REPORT INFORMATION
  Report Type: 
  Country: None (occurrence: None)
  Receive Date: 20080201
  Receipt Date: 20080109
  Transmission Date: 20080703
  Serious: No
  Sender: FDA-Public Use
  Company Number: US-BOEHRINGER INGELHEIM GMBH, GERMANY-2008-BP-00420BP

PATIENT
  Sex: Female

DRUGS (4)
  1. ZANTAC [Suspect]
     Indication: DYSPEPSIA
     Route: 048
     Dates: start: 20071209
  2. ZANTAC [Suspect]
  3. OMEPRAZOLE [Concomitant]
     Indication: GASTRIC ULCER
  4. STOOL SOFTENERS [Concomitant]
     Indication: FAECES HARD

REACTIONS (1)
  - FAECES DISCOLOURED [None]
